FAERS Safety Report 5166878-1 (Version None)
Quarter: 2006Q4

REPORT INFORMATION
  Report Type: 
  Country: None (occurrence: None)
  Receive Date: 20061207
  Receipt Date: 20061019
  Transmission Date: 20070319
  Serious: Yes (Hospitalization)
  Sender: FDA-Public Use
  Company Number: JP-ROCHE-468176

PATIENT
  Age: 38 Year
  Sex: Female
  Weight: 58 kg

DRUGS (6)
  1. ROCEPHIN [Suspect]
     Indication: PERICHONDRITIS
     Route: 041
     Dates: start: 20050707, end: 20050708
  2. OZEX [Suspect]
     Indication: PERICHONDRITIS
     Route: 048
     Dates: start: 20050704, end: 20050706
  3. LOXONIN [Suspect]
     Indication: PAIN
     Route: 048
     Dates: start: 20060704
  4. DALACIN S [Suspect]
     Indication: PERICHONDRITIS
     Route: 041
     Dates: start: 20050707, end: 20050708
  5. FLOMOX [Suspect]
     Indication: PERICHONDRITIS
     Route: 048
     Dates: start: 20050707, end: 20050709
  6. VOLTAREN [Concomitant]
     Route: 054
     Dates: start: 20050707

REACTIONS (1)
  - STEVENS-JOHNSON SYNDROME [None]
